FAERS Safety Report 23824376 (Version 2)
Quarter: 2024Q2

REPORT INFORMATION
  Report Type: Spontaneous
  Country: US (occurrence: US)
  Receive Date: 20240507
  Receipt Date: 20240508
  Transmission Date: 20240716
  Serious: No
  Sender: FDA-Public Use
  Company Number: US-SANDOZ-SDZ2024US045076

PATIENT

DRUGS (1)
  1. RITALIN [Suspect]
     Active Substance: METHYLPHENIDATE HYDROCHLORIDE
     Indication: Product used for unknown indication
     Dosage: 1 TABLET 3PM AS NEEDED
     Route: 065

REACTIONS (4)
  - Insomnia [Unknown]
  - Therapeutic product effect prolonged [Unknown]
  - Product substitution issue [Unknown]
  - Product availability issue [Unknown]
